FAERS Safety Report 4545724-0 (Version None)
Quarter: 2005Q1

REPORT INFORMATION
  Report Type: 
  Country: None (occurrence: None)
  Receive Date: 20050103
  Receipt Date: 20050103
  Transmission Date: 20050727
  Serious: Yes (Other)
  Sender: FDA-Public Use
  Company Number: None

PATIENT
  Age: 54 Year
  Sex: Female
  Weight: 88.905 kg

DRUGS (6)
  1. BEXTRA [Suspect]
     Indication: OSTEOARTHRITIS
     Dosage: DAILY   DAILY   ORAL
     Route: 048
     Dates: start: 20030301, end: 20041231
  2. SYNTHROID [Concomitant]
  3. EFFEXOR [Concomitant]
  4. MULTI-VITAMINS [Concomitant]
  5. NEXIUM [Concomitant]
  6. CALCIUM CARBONATE [Concomitant]

REACTIONS (3)
  - BLISTER [None]
  - INFLAMMATION [None]
  - OEDEMA MUCOSAL [None]
